FAERS Safety Report 17076240 (Version 1)
Quarter: 2019Q4

REPORT INFORMATION
  Report Type: Spontaneous
  Country: KR (occurrence: KR)
  Receive Date: 20191126
  Receipt Date: 20191126
  Transmission Date: 20200122
  Serious: Yes (Other)
  Sender: FDA-Public Use
  Company Number: KR-OXFORD PHARMACEUTICALS, LLC-2019OXF00169

PATIENT
  Age: 65 Year
  Sex: Male

DRUGS (1)
  1. RISPERIDONE. [Suspect]
     Active Substance: RISPERIDONE
     Indication: AGGRESSION
     Dosage: UNK
     Route: 065

REACTIONS (1)
  - Progressive supranuclear palsy [Recovered/Resolved]
